FAERS Safety Report 17652889 (Version 2)
Quarter: 2020Q3

REPORT INFORMATION
  Report Type: Spontaneous
  Country: DE (occurrence: DE)
  Receive Date: 20200409
  Receipt Date: 20200828
  Transmission Date: 20201102
  Serious: Yes (Other)
  Sender: FDA-Public Use
  Company Number: DE-GUERBET-DE-20200038

PATIENT
  Age: 49 Year
  Sex: Male
  Weight: 89 kg

DRUGS (1)
  1. DOTAREM [Suspect]
     Active Substance: GADOTERATE MEGLUMINE
     Indication: PRODUCT USED FOR UNKNOWN INDICATION
     Route: 042
     Dates: start: 20190205

REACTIONS (10)
  - Dizziness [Recovered/Resolved with Sequelae]
  - Vein disorder [Recovered/Resolved with Sequelae]
  - Visual impairment [Recovered/Resolved with Sequelae]
  - Feeling abnormal [Recovered/Resolved]
  - Lung disorder [Recovered/Resolved with Sequelae]
  - Fatigue [Recovered/Resolved]
  - Insomnia [Recovered/Resolved]
  - Dyspnoea [Not Recovered/Not Resolved]
  - Headache [Recovered/Resolved with Sequelae]
  - Skin burning sensation [Recovered/Resolved with Sequelae]

NARRATIVE: CASE EVENT DATE: 20190205
